FAERS Safety Report 5278614-9 (Version None)
Quarter: 2007Q1

REPORT INFORMATION
  Report Type: 
  Country: None (occurrence: None)
  Receive Date: 20070328
  Receipt Date: 20070326
  Transmission Date: 20070707
  Serious: Yes (Hospitalization, Other)
  Sender: FDA-Public Use
  Company Number: JP-JPN-A200701326

PATIENT
  Age: 61 Year
  Sex: Male
  Weight: 47 kg

DRUGS (26)
  1. ALKERAN [Suspect]
     Indication: STEM CELL TRANSPLANT
     Route: 042
     Dates: start: 20060516, end: 20060517
  2. ZOVIRAX [Suspect]
     Route: 042
     Dates: start: 20060518, end: 20060524
  3. ZOVIRAX [Suspect]
     Route: 042
     Dates: start: 20060719, end: 20060725
  4. SOLU-MEDROL [Concomitant]
     Indication: STEM CELL TRANSPLANT
     Route: 042
     Dates: start: 20060516, end: 20060517
  5. NEUTROGIN [Concomitant]
     Dates: start: 20060524, end: 20060601
  6. KYTRIL [Concomitant]
     Route: 042
     Dates: start: 20060516, end: 20060517
  7. FUROSEMIDE [Concomitant]
     Route: 042
     Dates: start: 20060516, end: 20060517
  8. FUROSEMIDE [Concomitant]
     Route: 042
     Dates: start: 20060519, end: 20060519
  9. VENOGLOBULIN [Concomitant]
     Route: 042
     Dates: start: 20060518, end: 20060520
  10. HAPTOGLOBIN [Concomitant]
     Route: 042
     Dates: start: 20060519, end: 20060519
  11. SAXIZON [Concomitant]
     Dates: start: 20060519, end: 20060519
  12. NOVOLIN R [Concomitant]
     Dates: start: 20060501, end: 20060527
  13. NOVOLIN R [Concomitant]
     Dates: start: 20060501, end: 20060529
  14. ROPION [Concomitant]
     Route: 042
     Dates: start: 20060619, end: 20060619
  15. BAKTAR [Concomitant]
     Dosage: 4G TWO TIMES PER WEEK
     Route: 048
     Dates: start: 20060215
  16. GASTER D [Concomitant]
     Route: 048
     Dates: start: 20060215
  17. DIOVAN [Concomitant]
     Route: 048
  18. UNKNOWN DRUG [Concomitant]
     Route: 048
  19. AMLODIN [Concomitant]
     Route: 048
  20. PLETAL [Concomitant]
     Route: 048
  21. POLYMYXIN B SULFATE [Concomitant]
     Route: 048
     Dates: start: 20060516, end: 20060530
  22. ITRACONAZOLE [Concomitant]
     Route: 048
     Dates: start: 20060516, end: 20060530
  23. UNKNOWN DRUG [Concomitant]
     Route: 048
     Dates: start: 20060525, end: 20060530
  24. LEVOFLOXACIN [Concomitant]
     Route: 048
     Dates: start: 20060516, end: 20060523
  25. LEVOFLOXACIN [Concomitant]
     Route: 048
     Dates: start: 20060606, end: 20060617
  26. ASTOMIN [Concomitant]
     Route: 048
     Dates: start: 20060621, end: 20060626

REACTIONS (2)
  - HERPES ZOSTER [None]
  - THROMBOCYTOPENIA [None]
